FAERS Safety Report 26182546 (Version 1)
Quarter: 2025Q4

REPORT INFORMATION
  Report Type: Spontaneous
  Country: US (occurrence: US)
  Receive Date: 20251221
  Receipt Date: 20251221
  Transmission Date: 20260118
  Serious: Yes (Hospitalization, Other)
  Sender: GLENMARK
  Company Number: US-GLENMARK PHARMACEUTICALS-2025GMK106812

PATIENT
  Age: 52 Year
  Sex: Female

DRUGS (6)
  1. POTASSIUM CHLORIDE [Suspect]
     Active Substance: POTASSIUM CHLORIDE
     Indication: Hypokalaemia
     Dosage: 20 MILLIGRAM
     Route: 065
  2. POTASSIUM CHLORIDE [Suspect]
     Active Substance: POTASSIUM CHLORIDE
     Indication: Electrolyte imbalance
  3. LISINOPRIL [Suspect]
     Active Substance: LISINOPRIL
     Indication: Electrolyte imbalance
     Dosage: 25 MILLIGRAM
     Route: 065
  4. LISINOPRIL [Suspect]
     Active Substance: LISINOPRIL
     Indication: Hypokalaemia
  5. SPIRONOLACTONE [Suspect]
     Active Substance: SPIRONOLACTONE
     Indication: Electrolyte imbalance
     Dosage: 25 MILLIGRAM
     Route: 065
  6. SPIRONOLACTONE [Suspect]
     Active Substance: SPIRONOLACTONE
     Indication: Hypokalaemia

REACTIONS (3)
  - Renal tubular acidosis [Recovering/Resolving]
  - Hyperkalaemia [Recovering/Resolving]
  - Intentional product misuse [Unknown]
